FAERS Safety Report 8862810 (Version 1)
Quarter: 2012Q4

REPORT INFORMATION
  Report Type: 
  Country: CA (occurrence: CA)
  Receive Date: 20121026
  Receipt Date: 20121026
  Transmission Date: 20130627
  Serious: Yes (Other)
  Sender: FDA-Public Use
  Company Number: PHMT2005CA00491

PATIENT
  Sex: Male

DRUGS (5)
  1. SANDOSTATIN LAR (PATIENT BASIS) [Suspect]
     Indication: ACROMEGALY
     Dates: start: 20040518
  2. CORTISOL [Concomitant]
  3. DOSTINEX [Concomitant]
  4. TESTOSTERONE [Concomitant]
  5. THYROXINE [Concomitant]

REACTIONS (2)
  - Blood pressure decreased [Unknown]
  - Insulin-like growth factor decreased [Unknown]
